FAERS Safety Report 24164653 (Version 1)
Quarter: 2024Q3

REPORT INFORMATION
  Report Type: Spontaneous
  Country: US (occurrence: US)
  Receive Date: 20240801
  Receipt Date: 20240801
  Transmission Date: 20241017
  Serious: No
  Sender: AIMMUNE
  Company Number: US-AIMMUNE THERAPEUTICS, INC.-2024AIMT00735

PATIENT

DRUGS (15)
  1. VOWST [Suspect]
     Active Substance: DONOR HUMAN STOOL SPORES (ETHANOL TREATED)
     Indication: Clostridium difficile infection
     Dosage: 4 CAPSULES, 1X/DAY (THREE DAYS ON AN EMPTY STOMACH)
     Route: 048
     Dates: start: 20240425, end: 20240427
  2. VOWST [Suspect]
     Active Substance: DONOR HUMAN STOOL SPORES (ETHANOL TREATED)
     Dosage: 4 CAPSULES, ONCE, LAST DOSE PRIOR EVENTS
     Route: 048
     Dates: start: 20240425, end: 20240427
  3. WARFARIN [Concomitant]
     Active Substance: WARFARIN
     Indication: Thrombosis
  4. PREVACID [Concomitant]
     Active Substance: LANSOPRAZOLE
     Indication: Gastrooesophageal reflux disease
  5. FOLIC ACID [Concomitant]
     Active Substance: FOLIC ACID
     Indication: Supplementation therapy
     Dosage: 1 MG, 1X/DAY
  6. METHOTREXATE [Concomitant]
     Active Substance: METHOTREXATE
     Indication: Rheumatoid arthritis
     Dosage: 2.5MG, ON MONDAY 4 TABS
  7. LISINOPRIL [Concomitant]
     Active Substance: LISINOPRIL
     Indication: Blood pressure measurement
     Dosage: 2.5 MG, 1X/DAY
  8. GABAPENTIN [Concomitant]
     Active Substance: GABAPENTIN
     Indication: Pain
     Dosage: 600 MG, 4X/DAY
  9. PREDNISONE [Concomitant]
     Active Substance: PREDNISONE
     Indication: Rheumatoid arthritis
     Dosage: 3 MG, 1X/DAY
  10. LEXAPRO [Concomitant]
     Active Substance: ESCITALOPRAM OXALATE
     Indication: Depression
     Dosage: 5 MG, 1X/DAY
  11. METAXALONE [Concomitant]
     Active Substance: METAXALONE
     Indication: Rheumatoid arthritis
     Dosage: 800 MG, 2X/DAY
  12. OMEPRAZOLE [Concomitant]
     Active Substance: OMEPRAZOLE
     Indication: Gastrooesophageal reflux disease
     Dosage: 40 MG, 1X/DAY
  13. TRAMADOL [Concomitant]
     Active Substance: TRAMADOL\TRAMADOL HYDROCHLORIDE
     Indication: Pain
     Dosage: 50 MG, AS NEEDED FOR PAIN
  14. COUMADIN [Concomitant]
     Active Substance: WARFARIN SODIUM
     Indication: Deep vein thrombosis
     Dosage: 5 MG, 1X/DAY
  15. COUMADIN [Concomitant]
     Active Substance: WARFARIN SODIUM
     Indication: Antiphospholipid syndrome

REACTIONS (3)
  - Anorectal discomfort [Recovered/Resolved]
  - Diarrhoea [Recovered/Resolved]
  - Abdominal discomfort [Recovered/Resolved]

NARRATIVE: CASE EVENT DATE: 20240428
